FAERS Safety Report 15314831 (Version 1)
Quarter: 2018Q3

REPORT INFORMATION
  Report Type: Spontaneous
  Country: US (occurrence: US)
  Receive Date: 20180824
  Receipt Date: 20180824
  Transmission Date: 20181010
  Serious: Yes (Hospitalization)
  Sender: FDA-Public Use
  Company Number: US-AMGEN-USASP2018103671

PATIENT
  Age: 17 Year
  Sex: Female

DRUGS (3)
  1. BLINCYTO [Suspect]
     Active Substance: BLINATUMOMAB
     Dosage: 28 MUG, QD (5.0 ML/HOUR)
     Route: 042
     Dates: start: 201807
  2. NORMAL SALINE [Concomitant]
     Active Substance: SODIUM CHLORIDE
     Dosage: 100 ML, UNK
     Dates: start: 2018
  3. BLINCYTO [Suspect]
     Active Substance: BLINATUMOMAB
     Indication: PRODUCT USED FOR UNKNOWN INDICATION
     Dosage: 28 MUG, QD (0.6 ML/HOUR)
     Route: 042
     Dates: start: 20180716

REACTIONS (5)
  - Device occlusion [Recovered/Resolved]
  - Dental caries [Unknown]
  - Muscular weakness [Unknown]
  - Tooth loss [Unknown]
  - Loose tooth [Unknown]

NARRATIVE: CASE EVENT DATE: 20180716
